FAERS Safety Report 4939276-0 (Version None)
Quarter: 2006Q1

REPORT INFORMATION
  Report Type: 
  Country: None (occurrence: None)
  Receive Date: 20060224
  Receipt Date: 20060224
  Transmission Date: 20060701
  Serious: Yes (Other)
  Sender: FDA-Public Use
  Company Number: 2006012077

PATIENT
  Age: 95 Year
  Sex: Female

DRUGS (1)
  1. LYRICA [Suspect]
     Indication: NEURALGIA
     Dosage: 150 MG (75 MG, 2 IN 1 D), ORAL
     Route: 048

REACTIONS (4)
  - CONFUSIONAL STATE [None]
  - INCONTINENCE [None]
  - ORAL INTAKE REDUCED [None]
  - SOMNOLENCE [None]
